FAERS Safety Report 5996909-8 (Version None)
Quarter: 2008Q4

REPORT INFORMATION
  Report Type: 
  Country: None (occurrence: None)
  Receive Date: 20081212
  Receipt Date: 20081028
  Transmission Date: 20090506
  Serious: No
  Sender: FDA-Public Use
  Company Number: US-ABBOTT-08P-163-0484475-00

PATIENT
  Age: 3 Week
  Sex: Male
  Weight: 3.178 kg

DRUGS (1)
  1. HUMIRA [Suspect]
     Indication: DRUG EXPOSURE DURING PREGNANCY
     Route: 064

REACTIONS (3)
  - BODY TEMPERATURE DECREASED [None]
  - DRUG EXPOSURE DURING PREGNANCY [None]
  - INVESTIGATION ABNORMAL [None]
